FAERS Safety Report 6772791-6 (Version None)
Quarter: 2010Q2

REPORT INFORMATION
  Report Type: 
  Country: None (occurrence: None)
  Receive Date: 20100616
  Receipt Date: 20100611
  Transmission Date: 20101027
  Serious: Yes (Other)
  Sender: FDA-Public Use
  Company Number: GXKR2010DE06442

PATIENT
  Sex: Female
  Weight: 64 kg

DRUGS (1)
  1. MPA HEXAL (NGX) [Suspect]
     Dosage: 250 MG, QD
     Route: 048
     Dates: start: 20091113, end: 20100215

REACTIONS (2)
  - MALIGNANT NEOPLASM PROGRESSION [None]
  - METASTASIS [None]
